FAERS Safety Report 13072650 (Version 2)
Quarter: 2018Q1

REPORT INFORMATION
  Report Type: Spontaneous
  Country: US (occurrence: US)
  Receive Date: 20161229
  Receipt Date: 20180115
  Transmission Date: 20180508
  Serious: Yes (Other)
  Sender: FDA-Public Use
  Company Number: US-SA-2016SA190734

PATIENT
  Age: 52 Year
  Sex: Female
  Weight: 86 kg

DRUGS (7)
  1. TAXOTERE [Suspect]
     Active Substance: DOCETAXEL
     Indication: BREAST CANCER FEMALE
     Dosage: EVERY 2-3 WEEKS
     Route: 051
     Dates: start: 20080104, end: 20080104
  2. ADRIAMYCIN [Concomitant]
     Active Substance: DOXORUBICIN HYDROCHLORIDE
  3. TAXOTERE [Suspect]
     Active Substance: DOCETAXEL
     Indication: BREAST CANCER FEMALE
     Dosage: EVERY 2-3 WEEKS
     Route: 051
     Dates: start: 20080208, end: 20080208
  4. 5-FU [Concomitant]
     Active Substance: FLUOROURACIL
  5. CYTOXAN [Concomitant]
     Active Substance: CYCLOPHOSPHAMIDE
  6. TAMOXIFEN [Concomitant]
     Active Substance: TAMOXIFEN
     Route: 065
     Dates: start: 2008, end: 2013
  7. SYNTHROID [Concomitant]
     Active Substance: LEVOTHYROXINE SODIUM
     Route: 065
     Dates: start: 1971

REACTIONS (1)
  - Alopecia [Not Recovered/Not Resolved]

NARRATIVE: CASE EVENT DATE: 20080108
